FAERS Safety Report 7204508-5 (Version None)
Quarter: 2010Q4

REPORT INFORMATION
  Report Type: 
  Country: None (occurrence: None)
  Receive Date: 20101230
  Receipt Date: 20101221
  Transmission Date: 20110411
  Serious: Yes (Death, Life-Threatening, Other)
  Sender: FDA-Public Use
  Company Number: US-GENZYME-CLOF-1001352

PATIENT
  Sex: Male
  Weight: 84.6 kg

DRUGS (7)
  1. CLOLAR [Suspect]
     Indication: ACUTE LEUKAEMIA
     Dosage: 60 MG QDX3 DAYS
     Route: 042
     Dates: start: 20101203, end: 20101205
  2. PRILOSEC [Concomitant]
     Indication: PRODUCT USED FOR UNKNOWN INDICATION
     Dosage: 20 UNK, QD
     Route: 048
  3. CELEBREX [Concomitant]
     Indication: PRODUCT USED FOR UNKNOWN INDICATION
     Dosage: UNK
     Route: 065
  4. LASIX [Concomitant]
     Indication: CARDIAC FAILURE CONGESTIVE
     Dosage: 80 MG, Q AM
     Route: 048
  5. LASIX [Concomitant]
     Dosage: 40 MG, Q PM
     Route: 048
  6. IRON SULFATETHIAMIN COMPOUND TAB [Concomitant]
     Indication: SUPPLEMENTATION THERAPY
     Dosage: 27 MG, BID
     Route: 048
  7. PLAVIX [Concomitant]
     Indication: PRODUCT USED FOR UNKNOWN INDICATION
     Dosage: 75 MG, QD
     Route: 048

REACTIONS (4)
  - ACUTE RESPIRATORY FAILURE [None]
  - CAPILLARY LEAK SYNDROME [None]
  - HYPOTENSION [None]
  - RENAL FAILURE ACUTE [None]
